FAERS Safety Report 6496619-7 (Version None)
Quarter: 2009Q4

REPORT INFORMATION
  Report Type: 
  Country: None (occurrence: None)
  Receive Date: 20091210
  Receipt Date: 20091203
  Transmission Date: 20100525
  Serious: Yes (Disabling)
  Sender: FDA-Public Use
  Company Number: 2009-193691-NL

PATIENT
  Age: 42 Year
  Sex: Female
  Weight: 86 kg

DRUGS (3)
  1. VARNOLINE (DESOGESTREL/ETHINYLESTRADIOL) (DESOGESTREL/ETHINYLESTRADIOL [Suspect]
     Indication: CONTRACEPTION
     Dosage: 1 DF, PO
     Route: 048
     Dates: start: 19990101, end: 20080701
  2. COAPROVEL [Concomitant]
  3. BISOPROLOL W/HYDROCHLOROTHIAZDE [Concomitant]

REACTIONS (5)
  - BLINDNESS UNILATERAL [None]
  - HYPERTENSION [None]
  - MENINGIOMA [None]
  - OPTIC NERVE DISORDER [None]
  - POST PROCEDURAL COMPLICATION [None]
